FAERS Safety Report 8839237 (Version 1)
Quarter: 2012Q4

REPORT INFORMATION
  Report Type: 
  Country: US (occurrence: US)
  Receive Date: 20121015
  Receipt Date: 20121015
  Transmission Date: 20130627
  Serious: Yes (Death, Other)
  Sender: FDA-Public Use
  Company Number: US-BAYER-2012-105200

PATIENT
  Age: 21 Year
  Sex: Female
  Weight: 66.21 kg

DRUGS (3)
  1. BEYAZ [Suspect]
     Dosage: UNK
     Dates: start: 20110623, end: 20110727
  2. TYLENOL [Concomitant]
     Indication: HEADACHE
     Dosage: UNK UNK, PRN
  3. OTHER ANALGESICS AND ANTIPYRETICS [Concomitant]
     Indication: HEADACHE

REACTIONS (8)
  - Deep vein thrombosis [None]
  - Pulmonary embolism [Fatal]
  - Chest pain [Fatal]
  - Dyspnoea [Fatal]
  - Palpitations [Fatal]
  - Pain in extremity [None]
  - Nausea [Fatal]
  - Anxiety [None]
